FAERS Safety Report 12454730 (Version 1)
Quarter: 2016Q2

REPORT INFORMATION
  Report Type: Spontaneous
  Country: RO (occurrence: RO)
  Receive Date: 20160610
  Receipt Date: 20160610
  Transmission Date: 20160815
  Serious: Yes (Hospitalization)
  Sender: FDA-Public Use
  Company Number: RO-WEST-WARD PHARMACEUTICALS CORP.-RO-H14001-16-00858

PATIENT
  Age: 59 Year
  Sex: Female

DRUGS (3)
  1. VANCOMYCIN [Suspect]
     Active Substance: VANCOMYCIN
     Indication: STREPTOCOCCAL ENDOCARDITIS
     Dates: start: 20150106, end: 20150203
  2. FLUCONAZOLE. [Suspect]
     Active Substance: FLUCONAZOLE
     Indication: STREPTOCOCCAL ENDOCARDITIS
     Route: 048
     Dates: start: 20150106
  3. AMPICILLIN [Suspect]
     Active Substance: AMPICILLIN
     Indication: STREPTOCOCCAL ENDOCARDITIS
     Dates: start: 20150116

REACTIONS (2)
  - Leukopenia [Recovered/Resolved]
  - Neutropenia [Recovered/Resolved]

NARRATIVE: CASE EVENT DATE: 20150202
